FAERS Safety Report 7743828-2 (Version None)
Quarter: 2011Q3

REPORT INFORMATION
  Report Type: 
  Country: None (occurrence: None)
  Receive Date: 20110912
  Receipt Date: 20110831
  Transmission Date: 20111222
  Serious: Yes (Hospitalization)
  Sender: FDA-Public Use
  Company Number: US-GLAXOSMITHKLINE-A0897013A

PATIENT
  Age: 62 Year
  Sex: Female
  Weight: 99.1 kg

DRUGS (6)
  1. AVANDIA [Suspect]
     Indication: TYPE 2 DIABETES MELLITUS
     Dosage: 4MG PER DAY
     Route: 048
  2. ASPIRIN [Concomitant]
  3. IMDUR [Concomitant]
  4. VASOTEC [Concomitant]
  5. CARDIZEM [Concomitant]
  6. GLYBURIDE [Concomitant]

REACTIONS (3)
  - CORONARY ARTERY BYPASS [None]
  - ANGINA UNSTABLE [None]
  - CORONARY ARTERY OCCLUSION [None]
